FAERS Safety Report 5129145-8 (Version None)
Quarter: 2006Q4

REPORT INFORMATION
  Report Type: 
  Country: None (occurrence: None)
  Receive Date: 20061011
  Receipt Date: 20060921
  Transmission Date: 20070319
  Serious: Yes (Other)
  Sender: FDA-Public Use
  Company Number: DE200608004052

PATIENT
  Age: 7 Year
  Sex: Male

DRUGS (4)
  1. STRATTERA [Suspect]
     Indication: ATTENTION DEFICIT/HYPERACTIVITY DISORDER
     Dosage: ORAL; SEE IMAGE
     Route: 048
     Dates: start: 20060701, end: 20060811
  2. STRATTERA [Suspect]
     Indication: ATTENTION DEFICIT/HYPERACTIVITY DISORDER
     Dosage: ORAL; SEE IMAGE
     Route: 048
     Dates: start: 20060828
  3. STRATTERA [Suspect]
     Indication: ATTENTION DEFICIT/HYPERACTIVITY DISORDER
     Dosage: ORAL; SEE IMAGE
     Route: 048
     Dates: start: 20060905
  4. STRATTERA [Suspect]
     Indication: ATTENTION DEFICIT/HYPERACTIVITY DISORDER
     Dosage: ORAL; SEE IMAGE
     Route: 048
     Dates: start: 20060912

REACTIONS (1)
  - ELECTROCARDIOGRAM QT PROLONGED [None]
